FAERS Safety Report 5612431-2 (Version None)
Quarter: 2008Q1

REPORT INFORMATION
  Report Type: 
  Country: None (occurrence: None)
  Receive Date: 20080204
  Receipt Date: 20080112
  Transmission Date: 20080703
  Serious: Yes (Hospitalization)
  Sender: FDA-Public Use
  Company Number: US-ROCHE-544695

PATIENT
  Age: 54 Year
  Sex: Male
  Weight: 65.9 kg

DRUGS (14)
  1. PEG-INTERFERON ALFA 2A (RO 25-8310) [Suspect]
     Indication: HEPATITIS C
     Route: 058
     Dates: start: 20070409, end: 20070924
  2. RIBAVIRIN [Suspect]
     Indication: HEPATITIS C
     Route: 048
     Dates: start: 20070409, end: 20070905
  3. VX-950 [Suspect]
     Indication: HEPATITIS C
     Route: 048
     Dates: start: 20070409, end: 20070924
  4. LOTENSIN [Concomitant]
  5. AMBIEN [Concomitant]
     Indication: INSOMNIA
     Dosage: TDD REPORTED AS 12.5 UNKNOWN.
     Route: 048
     Dates: start: 20070416
  6. PROTONIX [Concomitant]
     Route: 048
     Dates: start: 20070423
  7. PROCARDIA XL [Concomitant]
  8. VALTREX [Concomitant]
  9. LASIX [Concomitant]
  10. POTASSIUM CHLORIDE [Concomitant]
  11. TOPROL-XL [Concomitant]
  12. ENALAPRIL MALEATE [Concomitant]
  13. ATARAX [Concomitant]
  14. LEXAPRO [Concomitant]

REACTIONS (1)
  - CARDIOMYOPATHY [None]
